FAERS Safety Report 5498427-2 (Version None)
Quarter: 2007Q4

REPORT INFORMATION
  Report Type: 
  Country: None (occurrence: None)
  Receive Date: 20071024
  Receipt Date: 20071011
  Transmission Date: 20080405
  Serious: Yes (Hospitalization)
  Sender: FDA-Public Use
  Company Number: 237271K07USA

PATIENT
  Age: 63 Year
  Sex: Male

DRUGS (1)
  1. REBIF [Suspect]
     Indication: MULTIPLE SCLEROSIS
     Dosage: 44 MCG, 3 IN 1 WEEKS, SUBCUTANEOUS
     Route: 058
     Dates: start: 20070425

REACTIONS (6)
  - ARTHROPOD BITE [None]
  - DIARRHOEA [None]
  - DRUG DOSE OMISSION [None]
  - DYSPNOEA [None]
  - MALAISE [None]
  - PYREXIA [None]
